FAERS Safety Report 6589552-3 (Version None)
Quarter: 2010Q1

REPORT INFORMATION
  Report Type: 
  Country: None (occurrence: None)
  Receive Date: 20100212
  Receipt Date: 20100201
  Transmission Date: 20100710
  Serious: Yes (Life-Threatening, Hospitalization, Disabling)
  Sender: FDA-Public Use
  Company Number: 310001M10RUS

PATIENT
  Age: 28 Year
  Sex: Female

DRUGS (2)
  1. GONAL-F [Suspect]
     Indication: OVULATION INDUCTION
     Dosage: 75 IU, 1 IN 1 DAYS, SUBCUTANEOUS; 150 IU, 1 IN 1 DAYS, SUBCUTANEOUS
     Route: 058
     Dates: start: 20100101, end: 20100101
  2. GONAL-F [Suspect]
     Indication: OVULATION INDUCTION
     Dosage: 75 IU, 1 IN 1 DAYS, SUBCUTANEOUS; 150 IU, 1 IN 1 DAYS, SUBCUTANEOUS
     Route: 058
     Dates: start: 20100101, end: 20100119

REACTIONS (2)
  - OVARIAN HYPERSTIMULATION SYNDROME [None]
  - RENAL FAILURE ACUTE [None]
